FAERS Safety Report 5246829-1 (Version None)
Quarter: 2007Q1

REPORT INFORMATION
  Report Type: 
  Country: None (occurrence: None)
  Receive Date: 20070226
  Receipt Date: 20070215
  Transmission Date: 20070707
  Serious: Yes (Other)
  Sender: FDA-Public Use
  Company Number: US-PFIZER INC-2007013681

PATIENT
  Sex: Female
  Weight: 95.7 kg

DRUGS (5)
  1. CHANTIX [Suspect]
     Indication: SMOKING CESSATION THERAPY
     Route: 048
     Dates: start: 20070105, end: 20070109
  2. EFFEXOR [Concomitant]
     Route: 048
  3. CLONAZEPAM [Concomitant]
     Route: 048
  4. LAMICTAL [Concomitant]
     Route: 048
  5. DRUG, UNSPECIFIED [Concomitant]
     Route: 048

REACTIONS (2)
  - DEPRESSED MOOD [None]
  - PARANOIA [None]
